FAERS Safety Report 24937551 (Version 1)
Quarter: 2025Q1

REPORT INFORMATION
  Report Type: Spontaneous
  Country: GB (occurrence: GB)
  Receive Date: 20250206
  Receipt Date: 20250206
  Transmission Date: 20250409
  Serious: Yes (Hospitalization)
  Sender: PFIZER
  Company Number: None

PATIENT
  Age: 35 Year
  Sex: Female
  Weight: 62 kg

DRUGS (1)
  1. RIMEGEPANT [Suspect]
     Active Substance: RIMEGEPANT
     Indication: Migraine
     Dosage: 75 MG, ALTERNATE DAY
     Dates: start: 20250128, end: 20250130

REACTIONS (10)
  - Illness [Recovering/Resolving]
  - Headache [Unknown]
  - Nausea [Unknown]
  - Vomiting [Unknown]
  - Tremor [Unknown]
  - Dizziness [Unknown]
  - Confusional state [Unknown]
  - Coordination abnormal [Unknown]
  - Panic reaction [Unknown]
  - Visual impairment [Unknown]
